FAERS Safety Report 5232687-8 (Version None)
Quarter: 2007Q1

REPORT INFORMATION
  Report Type: 
  Country: None (occurrence: None)
  Receive Date: 20070207
  Receipt Date: 20070202
  Transmission Date: 20070707
  Serious: Yes (Life-Threatening)
  Sender: FDA-Public Use
  Company Number: 2007AC00197

PATIENT
  Age: 46 Year
  Sex: Male

DRUGS (5)
  1. LIDOCAINE [Suspect]
     Indication: LOCAL ANAESTHESIA
     Dosage: VISCOUS GARGLE.
     Route: 061
  2. LIDOCAINE [Suspect]
  3. BENZOCAINE [Suspect]
     Indication: LOCAL ANAESTHESIA
     Route: 061
  4. MIDAZOLAM HCL [Concomitant]
     Indication: SEDATIVE THERAPY
  5. FENTANYL [Concomitant]
     Indication: SEDATIVE THERAPY

REACTIONS (1)
  - METHAEMOGLOBINAEMIA [None]
